FAERS Safety Report 6902584-8 (Version None)
Quarter: 2010Q3

REPORT INFORMATION
  Report Type: 
  Country: None (occurrence: None)
  Receive Date: 20100803
  Receipt Date: 20080601
  Transmission Date: 20110219
  Serious: Yes (Other)
  Sender: FDA-Public Use
  Company Number: US-PFIZER INC-2008046918

PATIENT
  Sex: Male
  Weight: 116.6 kg

DRUGS (6)
  1. LYRICA [Suspect]
     Indication: BONE PAIN
     Dates: start: 20080530, end: 20080531
  2. METHADONE HCL [Concomitant]
  3. DILAUDID [Concomitant]
  4. ALL OTHER THERAPEUTIC PRODUCTS [Concomitant]
  5. CLONAZEPAM [Concomitant]
  6. SENOKOT [Concomitant]

REACTIONS (7)
  - DIZZINESS [None]
  - OEDEMA PERIPHERAL [None]
  - PAIN IN EXTREMITY [None]
  - SWELLING FACE [None]
  - SWOLLEN TONGUE [None]
  - VISION BLURRED [None]
  - WHEEZING [None]
